FAERS Safety Report 14747846 (Version 2)
Quarter: 2018Q3

REPORT INFORMATION
  Report Type: Report from Study
  Country: BR (occurrence: BR)
  Receive Date: 20180411
  Receipt Date: 20180810
  Transmission Date: 20181010
  Serious: Yes (Death, Life-Threatening, Hospitalization, Other)
  Sender: FDA-Public Use
  Company Number: BR-BAYER-2018-065728

PATIENT
  Age: 58 Year
  Sex: Male

DRUGS (5)
  1. DOMPERIDONE [Concomitant]
     Active Substance: DOMPERIDONE
     Dosage: 1 DF, BID
     Route: 048
     Dates: start: 201708, end: 20180316
  2. NEXAVAR [Suspect]
     Active Substance: SORAFENIB
     Indication: HEPATOCELLULAR CARCINOMA
     Dosage: 1 DF, BID
     Dates: start: 201802, end: 20180311
  3. SIMETHICONE (DIMETHICONE) [Concomitant]
     Active Substance: DIMETHICONE
     Indication: FLATULENCE
     Dosage: 1 DF, BID
     Route: 048
     Dates: start: 201708, end: 20180316
  4. DIPIRONA [Concomitant]
     Active Substance: METAMIZOLE
     Indication: PAIN
     Dosage: 40 GTT, PRN
     Route: 048
     Dates: start: 201708, end: 20180316
  5. TRAMAL [Concomitant]
     Active Substance: TRAMADOL
     Indication: PAIN
     Dosage: 1 DF, BID
     Route: 048
     Dates: start: 201801, end: 20180316

REACTIONS (8)
  - Gastric haemorrhage [None]
  - Feeding disorder [None]
  - Diarrhoea haemorrhagic [None]
  - Vomiting [None]
  - Weight decreased [None]
  - Hepatic failure [Fatal]
  - Asthenia [None]
  - Hepatocellular carcinoma [None]

NARRATIVE: CASE EVENT DATE: 2018
